FAERS Safety Report 9189593 (Version 1)
Quarter: 2013Q1

REPORT INFORMATION
  Report Type: Spontaneous
  Country: FR (occurrence: FR)
  Receive Date: 20130326
  Receipt Date: 20130326
  Transmission Date: 20140127
  Serious: Yes (Hospitalization)
  Sender: FDA-Public Use
  Company Number: FR-ELI_LILLY_AND_COMPANY-FR201303006106

PATIENT
  Age: 75 Year
  Sex: Male

DRUGS (1)
  1. FORSTEO [Suspect]
     Dosage: 20 UG, QD

REACTIONS (3)
  - Lung infection [Unknown]
  - Fatigue [Unknown]
  - Cyst [Unknown]
